FAERS Safety Report 5628473-7 (Version None)
Quarter: 2008Q1

REPORT INFORMATION
  Report Type: 
  Country: None (occurrence: None)
  Receive Date: 20080215
  Receipt Date: 20080204
  Transmission Date: 20080703
  Serious: Yes (Death)
  Sender: FDA-Public Use
  Company Number: US-PFIZER INC-2008002325

PATIENT
  Sex: Male
  Weight: 90.7 kg

DRUGS (1)
  1. SUTENT [Suspect]
     Indication: RENAL CELL CARCINOMA
     Route: 048
     Dates: start: 20080102, end: 20080102

REACTIONS (5)
  - CARDIAC ARREST [None]
  - DISEASE PROGRESSION [None]
  - HYPERCALCAEMIA [None]
  - RENAL CELL CARCINOMA [None]
  - RENAL FAILURE ACUTE [None]
